FAERS Safety Report 18710898 (Version 1)
Quarter: 2021Q1

REPORT INFORMATION
  Report Type: Report from Study
  Country: US (occurrence: US)
  Receive Date: 20210107
  Receipt Date: 20210107
  Transmission Date: 20210419
  Serious: Yes (Death, Hospitalization)
  Sender: FDA-Public Use
  Company Number: US-EMD SERONO-9198459

PATIENT
  Age: 72 Year
  Sex: Female

DRUGS (1)
  1. REBIF [Suspect]
     Active Substance: INTERFERON BETA-1A
     Indication: PRODUCT USED FOR UNKNOWN INDICATION
     Route: 058
     Dates: start: 20140127, end: 202012

REACTIONS (5)
  - Weight decreased [Unknown]
  - Asthenia [Unknown]
  - Colon cancer stage IV [Fatal]
  - Colon cancer metastatic [Fatal]
  - Feeling abnormal [Unknown]

NARRATIVE: CASE EVENT DATE: 202011
